FAERS Safety Report 7303762-9 (Version None)
Quarter: 2011Q1

REPORT INFORMATION
  Report Type: 
  Country: None (occurrence: None)
  Receive Date: 20110221
  Receipt Date: 20110211
  Transmission Date: 20110831
  Serious: Yes (Other)
  Sender: FDA-Public Use
  Company Number: ID-ROCHE-754555

PATIENT
  Age: 21 Year
  Sex: Female
  Weight: 47 kg

DRUGS (8)
  1. HEPARIN [Concomitant]
     Dosage: DOSE: 5000.0000 UI
     Dates: start: 20101124, end: 20101210
  2. FLUMUCIL [Concomitant]
     Dates: start: 20101130, end: 20101210
  3. METHYLPREDNISOLONE [Concomitant]
     Dates: start: 20101123, end: 20101123
  4. ASCORBIC ACID [Concomitant]
     Dates: start: 20101130, end: 20101210
  5. NEUROBION [Concomitant]
     Dosage: DOSE: 500 UI
     Dates: start: 20101130, end: 20101210
  6. OSELTAMIVIR [Suspect]
     Indication: AVIAN INFLUENZA
     Route: 065
     Dates: start: 20101123, end: 20101207
  7. MEROPENEM [Concomitant]
     Route: 065
     Dates: start: 20101122, end: 20101130
  8. AMIKACIN [Concomitant]
     Dates: start: 20101201, end: 20101210

REACTIONS (4)
  - ASPARTATE AMINOTRANSFERASE ABNORMAL [None]
  - RESPIRATORY FAILURE [None]
  - THROMBOCYTOPENIA [None]
  - SEPSIS [None]
